FAERS Safety Report 9638838 (Version 1)
Quarter: 2013Q4

REPORT INFORMATION
  Report Type: Spontaneous
  Country: US (occurrence: US)
  Receive Date: 20131022
  Receipt Date: 20131022
  Transmission Date: 20140711
  Serious: No
  Sender: FDA-Public Use
  Company Number: US-BRISTOL-MYERS SQUIBB COMPANY-19155688

PATIENT
  Age: 77 Year
  Sex: Female
  Weight: 74.83 kg

DRUGS (7)
  1. ELIQUIS [Suspect]
     Dosage: 5 MG SPLIT INTO 2.5 MG ONEC DAILY?TABS
  2. MELOXICAM [Concomitant]
  3. CALCIUM [Concomitant]
  4. IRON [Concomitant]
  5. THYROID [Concomitant]
  6. ZOMETA [Concomitant]
  7. REVLIMID [Concomitant]

REACTIONS (2)
  - Drug prescribing error [Unknown]
  - Wrong technique in drug usage process [Unknown]
